FAERS Safety Report 7105387-7 (Version None)
Quarter: 2010Q4

REPORT INFORMATION
  Report Type: 
  Country: None (occurrence: None)
  Receive Date: 20101108
  Receipt Date: 20101025
  Transmission Date: 20110411
  Serious: Yes (Hospitalization)
  Sender: FDA-Public Use
  Company Number: ACO_20024_2010

PATIENT
  Age: 52 Year
  Sex: Female

DRUGS (3)
  1. AMPYRA [Suspect]
     Indication: MULTIPLE SCLEROSIS
     Dosage: 10 MG, BID, ORAL
     Route: 048
     Dates: start: 20101021
  2. REBIF [Concomitant]
  3. BACLOFEN [Concomitant]

REACTIONS (1)
  - CONVULSION [None]
